FAERS Safety Report 8017412-X (Version None)
Quarter: 2012Q1

REPORT INFORMATION
  Report Type: 
  Country: None (occurrence: None)
  Receive Date: 20120102
  Receipt Date: 20070720
  Transmission Date: 20120608
  Serious: Yes (Life-Threatening)
  Sender: FDA-Public Use
  Company Number: JP-SANTEN INC.-INC-12-000004

PATIENT
  Sex: Male

DRUGS (2)
  1. LEVOFLOXACIN [Suspect]
     Indication: INFECTION PROPHYLAXIS
     Dosage: 1 GTT/DAILY
     Route: 047
     Dates: start: 20070709
  2. BENOXINATE HYDROCHLORIDE [Concomitant]
     Route: 047
     Dates: start: 20070709

REACTIONS (7)
  - DYSPNOEA [None]
  - ANAPHYLACTIC SHOCK [None]
  - PRURITUS GENERALISED [None]
  - EYE PRURITUS [None]
  - HYPOAESTHESIA [None]
  - EYELID OEDEMA [None]
  - CONJUNCTIVAL HYPERAEMIA [None]
